FAERS Safety Report 10156426 (Version 1)
Quarter: 2014Q2

REPORT INFORMATION
  Report Type: Spontaneous
  Country: FR (occurrence: None)
  Receive Date: 20140425
  Receipt Date: 20140425
  Transmission Date: 20141212
  Serious: Yes (Hospitalization)
  Sender: FDA-Public Use
  Company Number: FK201401428

PATIENT
  Age: 64 Year
  Sex: Male

DRUGS (4)
  1. VOLUVEN [Suspect]
     Indication: FLUID IMBALANCE
     Route: 042
     Dates: start: 20140217, end: 20140217
  2. GELOFUSIN [Suspect]
     Indication: FLUID IMBALANCE
     Route: 042
     Dates: start: 20140217, end: 20140217
  3. ISOFUNDINE [Suspect]
     Indication: FLUID IMBALANCE
     Route: 042
     Dates: start: 20140217, end: 20140217
  4. NORADRENALIN [Suspect]
     Indication: PRODUCT USED FOR UNKNOWN INDICATION
     Dates: start: 20140217, end: 20140218

REACTIONS (4)
  - Renal failure acute [None]
  - Hypertension [None]
  - Haemodialysis [None]
  - Arterial spasm [None]
